FAERS Safety Report 8429237-1 (Version None)
Quarter: 2012Q2

REPORT INFORMATION
  Report Type: 
  Country: None (occurrence: None)
  Receive Date: 20120601
  Receipt Date: 20120523
  Transmission Date: 20120825
  Serious: Yes (Hospitalization, Other)
  Sender: FDA-Public Use
  Company Number: 2012SP019207

PATIENT
  Age: 51 Year
  Sex: Male
  Weight: 71 kg

DRUGS (14)
  1. DOGMATYL [Concomitant]
  2. DOGMATYL [Concomitant]
  3. MUCOSTA [Concomitant]
  4. MIYA BM [Concomitant]
  5. REBETOL [Suspect]
     Indication: HEPATITIS C
     Dosage: 800 MG;QD;PO, 400 MG;QD;PO
     Route: 048
     Dates: start: 20120229, end: 20120305
  6. REBETOL [Suspect]
     Indication: HEPATITIS C
     Dosage: 800 MG;QD;PO, 400 MG;QD;PO
     Route: 048
     Dates: start: 20120202, end: 20120228
  7. FAMOTIDINE [Concomitant]
  8. EURAX H [Concomitant]
  9. PEGINTERFERON ALFA-2B [Suspect]
     Indication: HEPATITIS C
     Dosage: 100 MCG;QW;SC
     Route: 058
     Dates: start: 20120202, end: 20120224
  10. CEFAZOLIN SODIUM [Concomitant]
  11. MARZULENE-S [Concomitant]
  12. TELAVIC (ANTIVIRALS NOS) (2250 MG) [Suspect]
     Indication: HEPATITIS C
     Dosage: 2250 MG;QD;PO, 1500 MG;QD;PO
     Route: 048
     Dates: start: 20120202, end: 20120228
  13. TELAVIC (ANTIVIRALS NOS) (2250 MG) [Suspect]
     Indication: HEPATITIS C
     Dosage: 2250 MG;QD;PO, 1500 MG;QD;PO
     Route: 048
     Dates: start: 20120229, end: 20120305
  14. URSO 250 [Concomitant]

REACTIONS (8)
  - EPISTAXIS [None]
  - DYSGEUSIA [None]
  - PANCYTOPENIA [None]
  - DEPRESSION [None]
  - DIARRHOEA [None]
  - MALAISE [None]
  - DRUG ERUPTION [None]
  - DECREASED APPETITE [None]
